FAERS Safety Report 11879788 (Version 2)
Quarter: 2016Q1

REPORT INFORMATION
  Report Type: Spontaneous
  Country: SE (occurrence: SE)
  Receive Date: 20151230
  Receipt Date: 20160218
  Transmission Date: 20160526
  Serious: Yes (Hospitalization, Other)
  Sender: FDA-Public Use
  Company Number: SE-NOVOPROD-475014

PATIENT
  Sex: Male
  Weight: 4.95 kg

DRUGS (8)
  1. TRESIBA FLEXTOUCH U100 [Suspect]
     Active Substance: INSULIN DEGLUDEC
     Dosage: 38 IE, QD
     Route: 064
     Dates: start: 2015
  2. TRESIBA FLEXTOUCH U100 [Suspect]
     Active Substance: INSULIN DEGLUDEC
     Dosage: 37 IE, QD
     Route: 064
     Dates: start: 2015
  3. NOVORAPID [Suspect]
     Active Substance: INSULIN ASPART
     Dosage: 12 IE BOLUS
     Route: 064
     Dates: start: 2015
  4. TRESIBA FLEXTOUCH U100 [Suspect]
     Active Substance: INSULIN DEGLUDEC
     Indication: TYPE 1 DIABETES MELLITUS
     Dosage: 35 IE, QD
     Route: 064
     Dates: start: 2015
  5. TRESIBA FLEXTOUCH U100 [Suspect]
     Active Substance: INSULIN DEGLUDEC
     Dosage: 39 IE, QD
     Route: 064
     Dates: start: 2015
  6. TRESIBA FLEXTOUCH U100 [Suspect]
     Active Substance: INSULIN DEGLUDEC
     Dosage: 36 IE, QD
     Route: 064
     Dates: start: 2015
  7. NOVORAPID [Suspect]
     Active Substance: INSULIN ASPART
     Indication: TYPE 1 DIABETES MELLITUS
     Dosage: 8-10 IE BOLUS
     Route: 064
     Dates: start: 2015
  8. LEVAXIN [Concomitant]
     Active Substance: LEVOTHYROXINE SODIUM
     Indication: HYPOTHYROIDISM
     Dosage: 175 MG, QD
     Route: 064
     Dates: start: 2015

REACTIONS (3)
  - Pulmonary oedema [Unknown]
  - Foetal exposure during pregnancy [Recovered/Resolved]
  - Acidosis [Unknown]

NARRATIVE: CASE EVENT DATE: 2015
